FAERS Safety Report 9507821 (Version 4)
Quarter: 2013Q4

REPORT INFORMATION
  Report Type: Spontaneous
  Country: AU (occurrence: AU)
  Receive Date: 20130909
  Receipt Date: 20131219
  Transmission Date: 20140711
  Serious: Yes (Life-Threatening, Other)
  Sender: FDA-Public Use
  Company Number: AU-PFIZER INC-2013256011

PATIENT
  Age: 48 Year
  Sex: Female

DRUGS (19)
  1. LYRICA [Suspect]
     Indication: NEURALGIA
     Dosage: 75 MG, 1X/DAY
     Dates: start: 201304, end: 20130429
  2. FLUOXETINE HYDROCHLORIDE [Concomitant]
     Dosage: 60 MG, 1X/DAY
  3. DIAZEPAM [Concomitant]
     Indication: MUSCLE SPASMS
     Dosage: 5 MG, AS NEEDED, MIDDAY
  4. NITRAZEPAM [Concomitant]
     Indication: INSOMNIA
     Dosage: 5-15MG, 1-3 TABLETS AT NIGHT
  5. ATENOLOL [Concomitant]
     Dosage: UNK
  6. PREDNISOLONE [Concomitant]
     Dosage: UNK
  7. CYMBALTA [Concomitant]
     Indication: DEPRESSION
     Dosage: 60 MG, IN THE MORNING
     Route: 048
  8. SEROQUEL [Concomitant]
     Indication: BIPOLAR DISORDER
     Dosage: 200 MG, AT NIGHT
     Route: 048
  9. PARACETAMOL [Concomitant]
     Indication: PAIN
     Dosage: 665MG SR, TWO IN THE MORNING
  10. BACLOFEN [Concomitant]
     Indication: MUSCLE SPASMS
     Dosage: 25MG, HALF IN THE MORNING, ONE AT NIGHT
  11. MERSYNDOL DAYSTRENGTH [Concomitant]
     Indication: PAIN
     Dosage: 2 DF, 1X/DAY
  12. MERSYNDOL FORTE [Concomitant]
     Indication: PAIN
     Dosage: 1 TABLET TWICE A DAY
  13. TRANDOLAPRIL [Concomitant]
     Indication: HYPERTENSION
     Dosage: 4 MG, 2X/DAY
  14. FRUSEMIDE [Concomitant]
     Indication: HYPERTENSION
     Dosage: 40 MG IN THE MORNING
  15. ROSUVASTATIN [Concomitant]
     Indication: BLOOD CHOLESTEROL ABNORMAL
     Dosage: 10 MG IN THE MORNING
  16. ASPIRIN [Concomitant]
     Indication: CARDIOVASCULAR EVENT PROPHYLAXIS
     Dosage: 100 MG, AT NIGHT
  17. SYMBICORT [Concomitant]
     Indication: CHRONIC OBSTRUCTIVE PULMONARY DISEASE
     Dosage: INHALER, 2 PUFFS TWICE A DAY
  18. STEMETIL [Concomitant]
     Indication: NAUSEA
     Dosage: 5 MG, AS NEEDED
  19. QUETIAPINE [Concomitant]
     Dosage: UNK

REACTIONS (5)
  - Suicidal ideation [Recovered/Resolved]
  - Depressed mood [Recovered/Resolved]
  - Morbid thoughts [Recovered/Resolved]
  - Depression [Recovered/Resolved]
  - Anxiety [Recovered/Resolved]
